FAERS Safety Report 24286525 (Version 2)
Quarter: 2024Q4

REPORT INFORMATION
  Report Type: Spontaneous
  Country: US (occurrence: US)
  Receive Date: 20240905
  Receipt Date: 20241014
  Transmission Date: 20250115
  Serious: No
  Sender: BIOVITRUM
  Company Number: US-BIOVITRUM-2024-US-011686

PATIENT
  Age: 70 Year
  Sex: Female

DRUGS (1)
  1. VONJO [Suspect]
     Active Substance: PACRITINIB
     Indication: Myelofibrosis
     Dosage: BID
     Route: 048
     Dates: start: 20240729

REACTIONS (7)
  - Diarrhoea [Unknown]
  - Pruritus [Unknown]
  - Hot flush [Unknown]
  - Spleen scan abnormal [Unknown]
  - Faeces soft [Unknown]
  - Laboratory test abnormal [Unknown]
  - Asthenia [Unknown]
